FAERS Safety Report 15584136 (Version 1)
Quarter: 2018Q4

REPORT INFORMATION
  Report Type: Spontaneous
  Country: US (occurrence: US)
  Receive Date: 20181104
  Receipt Date: 20181104
  Transmission Date: 20190205
  Serious: Yes (Hospitalization, Other)
  Sender: FDA-Public Use
  Company Number: US-PRINSTON PHARMACEUTICAL INC.-2018PRN01538

PATIENT
  Age: 62 Year
  Sex: Female
  Weight: 81.63 kg

DRUGS (5)
  1. VALSARTAN AND HYDROCHLOROTHIAZIDE (MANUFACTURED BY MACLEOD) [Suspect]
     Active Substance: HYDROCHLOROTHIAZIDE\VALSARTAN
     Indication: HYPERTENSION
  2. LOSARTAN. [Concomitant]
     Active Substance: LOSARTAN
     Dosage: 50 MG, 1X/DAY
  3. VALSARTAN AND HYDROCHLOROTHIAZIDE [Suspect]
     Active Substance: HYDROCHLOROTHIAZIDE\VALSARTAN
     Indication: HYPERTENSION
     Dosage: 1 TABLETS, 1X/DAY
     Route: 048
     Dates: end: 20180726
  4. VALSARTAN AND HYDROCHLOROTHIAZIDE [Suspect]
     Active Substance: HYDROCHLOROTHIAZIDE\VALSARTAN
     Indication: HYPERTENSION
     Dosage: 1 TABLETS, 1X/DAY
     Route: 048
     Dates: start: 20180627, end: 201807
  5. HUMIRA [Concomitant]
     Active Substance: ADALIMUMAB

REACTIONS (3)
  - Hysterectomy [Unknown]
  - Blood pressure increased [Unknown]
  - Precancerous cells present [Unknown]

NARRATIVE: CASE EVENT DATE: 20180605
